FAERS Safety Report 8412774-3 (Version None)
Quarter: 2012Q2

REPORT INFORMATION
  Report Type: 
  Country: None (occurrence: None)
  Receive Date: 20120531
  Receipt Date: 20120531
  Transmission Date: 20120825
  Serious: Yes (Other)
  Sender: FDA-Public Use
  Company Number: None

PATIENT
  Age: 46 Year
  Sex: Female
  Weight: 68.9467 kg

DRUGS (2)
  1. IRON SUCROSE [Suspect]
     Indication: IRON DEFICIENCY
     Dosage: 500MG X1 IV DRIP
     Route: 041
     Dates: start: 20120511, end: 20120511
  2. IRON SUCROSE [Suspect]
     Indication: IRON DEFICIENCY
     Dosage: 500MG X1 IV DRIP
     Route: 041
     Dates: start: 20120525, end: 20120525

REACTIONS (10)
  - ABDOMINAL PAIN UPPER [None]
  - BLOOD PRESSURE DECREASED [None]
  - OEDEMA PERIPHERAL [None]
  - NAUSEA [None]
  - ANGIOEDEMA [None]
  - INFUSION SITE PHLEBITIS [None]
  - ERYTHEMA [None]
  - DIZZINESS [None]
  - PHLEBITIS [None]
  - URTICARIA [None]
